FAERS Safety Report 12189072 (Version 7)
Quarter: 2016Q3

REPORT INFORMATION
  Report Type: Report from Study
  Country: DE (occurrence: DE)
  Receive Date: 20160317
  Receipt Date: 20160719
  Transmission Date: 20161109
  Serious: Yes (Death, Other)
  Sender: FDA-Public Use
  Company Number: DE-GLAXOSMITHKLINE-DE2016037834

PATIENT
  Age: 65 Year
  Sex: Male
  Weight: 110 kg

DRUGS (1)
  1. MEPOLIZUMAB [Suspect]
     Active Substance: MEPOLIZUMAB
     Indication: EOSINOPHILIC GRANULOMATOSIS WITH POLYANGIITIS
     Dosage: 300 MG, CYC
     Route: 058
     Dates: start: 20150630, end: 20160302

REACTIONS (3)
  - Cardiac arrest [Fatal]
  - Dyspnoea [Fatal]
  - Hypoxia [Fatal]

NARRATIVE: CASE EVENT DATE: 20160313
